FAERS Safety Report 9887756 (Version 1)
Quarter: 2014Q1

REPORT INFORMATION
  Report Type: Spontaneous
  Country: US (occurrence: None)
  Receive Date: 20140206
  Receipt Date: 20140206
  Transmission Date: 20141002
  Serious: Yes (Other)
  Sender: FDA-Public Use
  Company Number: A1059515A

PATIENT
  Sex: Female

DRUGS (2)
  1. ASPIRIN + CAFFEINE + PARACETAMOL [Suspect]
     Indication: PRODUCT USED FOR UNKNOWN INDICATION
     Dates: start: 20111117, end: 20111124
  2. PARACETAMOL [Suspect]
     Dates: start: 20111117, end: 20111124

REACTIONS (1)
  - Acute hepatic failure [None]
